FAERS Safety Report 24822585 (Version 2)
Quarter: 2025Q1

REPORT INFORMATION
  Report Type: Spontaneous
  Country: US (occurrence: US)
  Receive Date: 20250109
  Receipt Date: 20250130
  Transmission Date: 20250409
  Serious: No
  Sender: ROCHE
  Company Number: US-ROCHE-10000174899

PATIENT
  Sex: Male

DRUGS (3)
  1. XOLAIR PFS [Suspect]
     Active Substance: OMALIZUMAB
     Indication: Idiopathic urticaria
     Dosage: STRENGTH: 300MG/2ML
     Route: 058
     Dates: start: 202204
  2. XOLAIR PFS [Suspect]
     Active Substance: OMALIZUMAB
  3. CYCLOSPORINE MODIFIED [Concomitant]
     Active Substance: CYCLOSPORINE

REACTIONS (1)
  - Urticaria [Unknown]
